FAERS Safety Report 9643108 (Version 1)
Quarter: 2013Q4

REPORT INFORMATION
  Report Type: Spontaneous
  Country: SE (occurrence: SE)
  Receive Date: 20131024
  Receipt Date: 20131024
  Transmission Date: 20140711
  Serious: Yes (Life-Threatening, Hospitalization)
  Sender: FDA-Public Use
  Company Number: SE-ASTRAZENECA-2013SE77749

PATIENT
  Age: 59 Year
  Sex: Female

DRUGS (6)
  1. OMEPRAZOL [Suspect]
     Route: 048
  2. NEXIUM [Suspect]
     Route: 048
  3. SALURES [Concomitant]
     Route: 048
  4. ATENOLOL [Concomitant]
     Route: 048
  5. AMLODIPIN [Concomitant]
     Route: 048
  6. LOSARTAN [Concomitant]
     Route: 048

REACTIONS (3)
  - Hypocalcaemia [Recovered/Resolved]
  - Blood creatinine increased [Recovered/Resolved]
  - Hypomagnesaemia [Recovered/Resolved]
